FAERS Safety Report 24743381 (Version 2)
Quarter: 2024Q4

REPORT INFORMATION
  Report Type: Spontaneous
  Country: US (occurrence: US)
  Receive Date: 20241217
  Receipt Date: 20241224
  Transmission Date: 20250114
  Serious: Yes (Other)
  Sender: PFIZER
  Company Number: US-PFIZER INC-PV202400163034

PATIENT
  Age: 45 Year
  Sex: Female

DRUGS (7)
  1. METHOTREXATE SODIUM [Suspect]
     Active Substance: METHOTREXATE SODIUM
     Indication: B-cell type acute leukaemia
     Dosage: 14 DOSES
     Route: 037
  2. CYCLOPHOSPHAMIDE [Concomitant]
     Active Substance: CYCLOPHOSPHAMIDE
     Indication: B-cell type acute leukaemia
     Dosage: UNK
  3. DEXAMETHASONE [Concomitant]
     Active Substance: DEXAMETHASONE
     Indication: B-cell type acute leukaemia
     Dosage: UNK
  4. DOXORUBICIN [Concomitant]
     Active Substance: DOXORUBICIN
     Indication: B-cell type acute leukaemia
     Dosage: UNK
  5. VINCRISTINE [Concomitant]
     Active Substance: VINCRISTINE
     Indication: B-cell type acute leukaemia
     Dosage: UNK
  6. CYTARABINE [Concomitant]
     Active Substance: CYTARABINE
     Indication: B-cell type acute leukaemia
     Dosage: UNK
  7. PONATINIB [Concomitant]
     Active Substance: PONATINIB
     Indication: B-cell type acute leukaemia
     Dosage: UNK

REACTIONS (1)
  - Myelopathy [Recovered/Resolved]
